FAERS Safety Report 11934807 (Version 1)
Quarter: 2016Q1

REPORT INFORMATION
  Report Type: Spontaneous
  Country: CA (occurrence: CA)
  Receive Date: 20160121
  Receipt Date: 20160121
  Transmission Date: 20160526
  Serious: Yes (Other)
  Sender: FDA-Public Use
  Company Number: CA-TEVA-627269ACC

PATIENT
  Age: 28 Year
  Sex: Female

DRUGS (1)
  1. TEVA-BUPRENORPHINE/NALOXONE [Suspect]
     Active Substance: BUPRENORPHINE\NALOXONE
     Indication: DRUG DEPENDENCE
     Dosage: 16 MILLIGRAM DAILY;
     Route: 060

REACTIONS (2)
  - Glossodynia [Recovered/Resolved]
  - Product substitution issue [Recovered/Resolved]
